FAERS Safety Report 25720991 (Version 2)
Quarter: 2025Q3

REPORT INFORMATION
  Report Type: Spontaneous
  Country: US (occurrence: US)
  Receive Date: 20250825
  Receipt Date: 20250902
  Transmission Date: 20251021
  Serious: Yes (Hospitalization, Other)
  Sender: STRIDES
  Company Number: None

PATIENT
  Age: 58 Year
  Sex: Female

DRUGS (7)
  1. IBUPROFEN [Suspect]
     Active Substance: IBUPROFEN
     Indication: Pain
     Route: 065
  2. IBUPROFEN [Suspect]
     Active Substance: IBUPROFEN
     Indication: Abdominal pain lower
  3. CISPLATIN [Suspect]
     Active Substance: CISPLATIN
     Indication: Endometrial cancer stage III
     Route: 042
  4. CARBOPLATIN [Suspect]
     Active Substance: CARBOPLATIN
     Indication: Endometrial cancer stage III
     Route: 042
  5. PACLITAXEL [Suspect]
     Active Substance: PACLITAXEL
     Indication: Endometrial cancer stage III
     Route: 065
  6. PACLITAXEL [Suspect]
     Active Substance: PACLITAXEL
     Route: 065
  7. LEVOTHYROXINE [Concomitant]
     Active Substance: LEVOTHYROXINE
     Indication: Hypothyroidism
     Route: 065

REACTIONS (5)
  - Oesophagitis [Unknown]
  - Duodenal ulcer [Unknown]
  - Reactive gastropathy [Recovered/Resolved]
  - Gastric haemorrhage [Recovered/Resolved]
  - Peptic ulcer [Unknown]
